FAERS Safety Report 7336610-1 (Version None)
Quarter: 2011Q1

REPORT INFORMATION
  Report Type: 
  Country: None (occurrence: None)
  Receive Date: 20110307
  Receipt Date: 20110223
  Transmission Date: 20110831
  Serious: Yes (Life-Threatening, Hospitalization, Other)
  Sender: FDA-Public Use
  Company Number: DE-BAYER-2011-017439

PATIENT
  Sex: Female

DRUGS (1)
  1. AVELOX [Suspect]
     Indication: PNEUMONIA
     Dosage: UNK

REACTIONS (4)
  - COMA [None]
  - MULTI-ORGAN FAILURE [None]
  - CARDIAC ARREST [None]
  - CIRCULATORY COLLAPSE [None]
